FAERS Safety Report 5011866-9 (Version None)
Quarter: 2006Q2

REPORT INFORMATION
  Report Type: 
  Country: None (occurrence: None)
  Receive Date: 20060526
  Receipt Date: 20060517
  Transmission Date: 20061013
  Serious: Yes (Hospitalization)
  Sender: FDA-Public Use
  Company Number: CH-AVENTIS-200615419GDDC

PATIENT
  Age: 84 Year
  Sex: Male
  Weight: 69 kg

DRUGS (11)
  1. AMARYL [Suspect]
     Route: 048
     Dates: end: 20060222
  2. SORTIS [Suspect]
     Indication: ARTERIOSCLEROSIS CORONARY ARTERY
     Route: 048
     Dates: start: 20050101, end: 20060220
  3. REMERON [Suspect]
     Route: 042
     Dates: start: 20060220, end: 20060224
  4. LISITRIL [Suspect]
     Route: 048
     Dates: start: 20060223, end: 20060224
  5. ASPIRIN [Concomitant]
     Indication: ARTERIOSCLEROSIS CORONARY ARTERY
     Route: 048
     Dates: start: 19990101
  6. ALDACTONE [Concomitant]
     Route: 048
  7. DILATREND [Concomitant]
     Route: 048
  8. TORSEMIDE [Concomitant]
     Route: 048
  9. CORVATON [Concomitant]
     Route: 048
     Dates: end: 20060228
  10. DISTRANEURIN [Concomitant]
     Route: 048
     Dates: start: 20060220, end: 20060224
  11. LOPIRIN [Concomitant]
     Route: 048
     Dates: start: 20060221, end: 20060222

REACTIONS (6)
  - ACUTE CORONARY SYNDROME [None]
  - BLOOD CREATINE PHOSPHOKINASE INCREASED [None]
  - BLOOD CREATININE INCREASED [None]
  - RHABDOMYOLYSIS [None]
  - TRANSAMINASES INCREASED [None]
  - VENTRICULAR DYSFUNCTION [None]
